FAERS Safety Report 4602989-4 (Version None)
Quarter: 2005Q1

REPORT INFORMATION
  Report Type: 
  Country: None (occurrence: None)
  Receive Date: 20050307
  Receipt Date: 20050218
  Transmission Date: 20050727
  Serious: Yes (Death)
  Sender: FDA-Public Use
  Company Number: 2005034781

PATIENT
  Sex: Female

DRUGS (13)
  1. BEXTRA [Suspect]
     Indication: ARTHRITIS
     Dosage: ORAL
     Route: 048
     Dates: start: 20040101
  2. NIFEDIPINE [Concomitant]
  3. ASPIRIN [Concomitant]
  4. ATORVASTATIN CALCIUM [Concomitant]
  5. OMEPRAZOLE [Concomitant]
  6. FUROSEMIDE [Concomitant]
  7. OMEPRAZOLE [Concomitant]
  8. AMITRIPTYLINE HCL [Concomitant]
  9. CLORAZEPATE DIPOTASSIUM [Concomitant]
  10. TRAZODONE HCL [Concomitant]
  11. ESCITALOPRAM (ESCITALOPRAM) [Concomitant]
  12. VALORON N (NALOXONE HYDROCHLORIDE, TILIDINE HYDROCHLORIDE) [Concomitant]
  13. BUDESONIDE (BUDESONIDE) [Concomitant]

REACTIONS (4)
  - ANXIETY [None]
  - CARDIAC ARREST [None]
  - FATIGUE [None]
  - SUDDEN DEATH [None]
